FAERS Safety Report 5990218-9 (Version None)
Quarter: 2008Q4

REPORT INFORMATION
  Report Type: 
  Country: None (occurrence: None)
  Receive Date: 20081209
  Receipt Date: 20081124
  Transmission Date: 20090506
  Serious: Yes (Hospitalization)
  Sender: FDA-Public Use
  Company Number: 2006-03184

PATIENT
  Age: 63 Year
  Sex: Male
  Weight: 45 kg

DRUGS (1)
  1. VELCADE [Suspect]
     Indication: MULTIPLE MYELOMA
     Dosage: 1.90 MG, INTRAVENOUS
     Route: 042
     Dates: start: 20060922, end: 20061023

REACTIONS (4)
  - ENDOCARDITIS [None]
  - MALIGNANT NEOPLASM PROGRESSION [None]
  - STAPHYLOCOCCAL INFECTION [None]
  - THROMBOPHLEBITIS [None]
